FAERS Safety Report 9186013 (Version 1)
Quarter: 2013Q1

REPORT INFORMATION
  Report Type: Spontaneous
  Country: US (occurrence: US)
  Receive Date: 20130325
  Receipt Date: 20130325
  Transmission Date: 20140127
  Serious: Yes (Other)
  Sender: FDA-Public Use
  Company Number: CHPA2013US004883

PATIENT
  Sex: Female

DRUGS (2)
  1. EXCEDRIN MIGRAINE [Suspect]
     Dosage: UNK, UNK
     Route: 048
  2. EXCEDRIN PM [Suspect]
     Dosage: UNK, UNK
     Route: 048

REACTIONS (4)
  - Road traffic accident [Recovered/Resolved]
  - Neck injury [Not Recovered/Not Resolved]
  - Joint injury [Not Recovered/Not Resolved]
  - Back injury [Not Recovered/Not Resolved]
